FAERS Safety Report 9205835 (Version 3)
Quarter: 2013Q2

REPORT INFORMATION
  Report Type: Spontaneous
  Country: US (occurrence: None)
  Receive Date: 20130401
  Receipt Date: 20130531
  Transmission Date: 20140414
  Serious: Yes (Other)
  Sender: FDA-Public Use
  Company Number: 1303-387

PATIENT
  Age: 80 Year
  Sex: Female

DRUGS (11)
  1. EYLEA [Suspect]
     Indication: AGE-RELATED MACULAR DEGENERATION
     Dosage: 2MG, 1 IN 1M, INTRAVITREAL
     Dates: start: 20121114, end: 20121117
  2. METHOTREXATE (METHOTREXATE) (TABLET) [Concomitant]
  3. FOSAMAX (ALENDRONATE SODIUM) (TABLET) [Concomitant]
  4. FOLIC ACID (FOLIC ACID) [Concomitant]
  5. ICAPS (MINTERALS NOS W/VITAMINS NOS) [Concomitant]
  6. CORAL CALCIUM (CALCIUM) [Concomitant]
  7. NORVASC (AMLODIPINE BESILATE) (TABLET) [Concomitant]
  8. ZOCOR (SIMVASTATIN) (TABLET) [Concomitant]
  9. HYDROCHLOROTHIAZIDE (HYDROCHLOROTHIAZIDE) (TABLET) [Concomitant]
  10. KAOCHLOR-EFF (KAOCHLOR-EFF) (TABLET) [Concomitant]
  11. MELOXICAM (MELOXICAM) (TABLET) [Concomitant]

REACTIONS (1)
  - Keratitis [None]
